FAERS Safety Report 17127753 (Version 1)
Quarter: 2019Q4

REPORT INFORMATION
  Report Type: Spontaneous
  Country: DE (occurrence: DE)
  Receive Date: 20191209
  Receipt Date: 20191209
  Transmission Date: 20200122
  Serious: Yes (Other)
  Sender: FDA-Public Use
  Company Number: DE-TORRENT-00016098

PATIENT
  Age: 27 Year
  Sex: Female
  Weight: 79 kg

DRUGS (4)
  1. BROMOCRIPTINE [Concomitant]
     Active Substance: BROMOCRIPTINE
     Indication: HYPERPROLACTINAEMIA
     Dosage: 3.75 [MG/D (BIS 1.25 MG/D) ]
     Route: 048
     Dates: start: 20181012, end: 20181204
  2. QUETIAPINE. [Suspect]
     Active Substance: QUETIAPINE
     Indication: SCHIZOPHRENIA
     Dosage: 600 [MG/D (BIS 150 MG/D) ]
     Route: 048
     Dates: start: 20181012, end: 20190720
  3. FLUPHENAZINE [Concomitant]
     Active Substance: FLUPHENAZINE
     Indication: SCHIZOPHRENIA
     Dosage: 25 [MG/D (2 WK) ]
     Route: 030
     Dates: start: 20181018, end: 20181018
  4. FOLSAURE [Concomitant]
     Active Substance: FOLIC ACID
     Indication: PROPHYLAXIS OF NEURAL TUBE DEFECT
     Dosage: UNKNOWN
     Route: 048
     Dates: start: 20181204, end: 20190720

REACTIONS (2)
  - Gestational diabetes [Recovered/Resolved]
  - Exposure during pregnancy [Unknown]
